FAERS Safety Report 13653334 (Version 1)
Quarter: 2017Q2

REPORT INFORMATION
  Report Type: Spontaneous
  Country: US (occurrence: US)
  Receive Date: 20170614
  Receipt Date: 20170614
  Transmission Date: 20170830
  Serious: No
  Sender: FDA-Public Use
  Company Number: US-ROCHE-1308818

PATIENT
  Sex: Male

DRUGS (2)
  1. XELODA [Suspect]
     Active Substance: CAPECITABINE
     Indication: COLON CANCER
     Dosage: 4 TWICE A DAY FOR 14 DAYS ON AND 7 DAYS OFF
     Route: 048
     Dates: start: 20130810
  2. ALBUTEROL INHALER [Concomitant]
     Active Substance: ALBUTEROL

REACTIONS (9)
  - Fatigue [Unknown]
  - Rash [Unknown]
  - Rhinorrhoea [Unknown]
  - Viral upper respiratory tract infection [Unknown]
  - Somnolence [Unknown]
  - Neuropathy peripheral [Unknown]
  - Chills [Unknown]
  - Nausea [Unknown]
  - Pain [Unknown]
